FAERS Safety Report 8715770 (Version 2)
Quarter: 2013Q1

REPORT INFORMATION
  Report Type: Report from Study
  Country: JP (occurrence: JP)
  Receive Date: 20120809
  Receipt Date: 20130307
  Transmission Date: 20140127
  Serious: Yes (Hospitalization)
  Sender: FDA-Public Use
  Company Number: JP-PFIZER INC-2012150076

PATIENT
  Age: 70 Year
  Sex: Female
  Weight: 48.9 kg

DRUGS (15)
  1. CRIZOTINIB [Suspect]
     Indication: NON-SMALL CELL LUNG CANCER
     Dosage: 250 MG, 2X/DAY
     Route: 048
     Dates: start: 20120214, end: 20120620
  2. ATORVASTATIN CALCIUM [Concomitant]
     Indication: HYPERLIPIDAEMIA
     Dosage: UNK
     Dates: start: 20120208
  3. ATORVASTATIN CALCIUM [Concomitant]
     Indication: HYPERCHOLESTEROLAEMIA
  4. AMLODIPINE BESILATE [Concomitant]
     Indication: HYPERTENSION
     Dosage: UNK
     Dates: start: 20120208
  5. WARFARIN POTASSIUM [Concomitant]
     Indication: PROPHYLAXIS
     Dosage: UNK
     Dates: start: 20120217
  6. NATEGLINIDE [Concomitant]
     Indication: TYPE 2 DIABETES MELLITUS
     Dosage: UNK
     Dates: start: 20120215
  7. MAGNESIUM OXIDE [Concomitant]
     Indication: PROPHYLAXIS
     Dosage: UNK
     Dates: start: 20120501
  8. BETAMETHASONE [Concomitant]
     Indication: UVEITIS
     Dosage: UNK
     Dates: start: 20120417
  9. BETAMETHASONE [Concomitant]
     Indication: CATARACT
  10. LEVOFLOXACIN [Concomitant]
     Indication: UVEITIS
     Dosage: UNK
     Dates: start: 20120417
  11. LEVOFLOXACIN [Concomitant]
     Indication: CATARACT
  12. TROPICAMIDE [Concomitant]
     Indication: UVEITIS
     Dosage: UNK
     Dates: start: 20120417
  13. TROPICAMIDE [Concomitant]
     Indication: CATARACT
  14. ATROPINE [Concomitant]
     Indication: UVEITIS
     Dosage: UNK
     Dates: start: 20120417
  15. ATROPINE [Concomitant]
     Indication: CATARACT

REACTIONS (1)
  - Interstitial lung disease [Not Recovered/Not Resolved]
